FAERS Safety Report 18736155 (Version 3)
Quarter: 2022Q2

REPORT INFORMATION
  Report Type: Spontaneous
  Country: US (occurrence: US)
  Receive Date: 20210113
  Receipt Date: 20220602
  Transmission Date: 20220721
  Serious: No
  Sender: FDA-Public Use
  Company Number: US-PFIZER INC-2021021422

PATIENT
  Age: 46 Year
  Sex: Female
  Weight: 140 kg

DRUGS (1)
  1. LYRICA [Suspect]
     Active Substance: PREGABALIN
     Indication: Pain
     Dosage: 2 DF, DAILY

REACTIONS (3)
  - Drug ineffective [Not Recovered/Not Resolved]
  - Constipation [Unknown]
  - Insomnia [Unknown]
